FAERS Safety Report 4315740-2 (Version None)
Quarter: 2004Q1

REPORT INFORMATION
  Report Type: 
  Country: None (occurrence: None)
  Receive Date: 20040310
  Receipt Date: 20040227
  Transmission Date: 20041129
  Serious: Yes (Hospitalization, Other)
  Sender: FDA-Public Use
  Company Number: 2004014073

PATIENT
  Age: 71 Year
  Sex: Female
  Weight: 56.246 kg

DRUGS (3)
  1. LIPITOR [Suspect]
     Indication: BLOOD CHOLESTEROL INCREASED
     Dosage: 10 MG (DAILY), ORAL
     Route: 048
  2. ANASTROZOLE [Concomitant]
  3. ASPIRIN [Concomitant]

REACTIONS (2)
  - BLOOD URINE [None]
  - BREAST CANCER [None]
